FAERS Safety Report 14261512 (Version 6)
Quarter: 2018Q3

REPORT INFORMATION
  Report Type: Report from Study
  Country: None (occurrence: CA)
  Receive Date: 20171208
  Receipt Date: 20180904
  Transmission Date: 20181010
  Serious: Yes (Hospitalization, Other)
  Sender: FDA-Public Use
  Company Number: CA-ABBVIE-17K-028-2182074-00

PATIENT
  Age: 62 Year
  Sex: Male
  Weight: 96 kg

DRUGS (1)
  1. HUMIRA [Suspect]
     Active Substance: ADALIMUMAB
     Indication: CROHN^S DISEASE
     Route: 058
     Dates: start: 20160815

REACTIONS (9)
  - Postoperative adhesion [Recovered/Resolved]
  - Colon dysplasia [Recovered/Resolved]
  - Deep vein thrombosis [Unknown]
  - Volvulus [Not Recovered/Not Resolved]
  - Psoriasis [Recovering/Resolving]
  - Hypertension [Unknown]
  - Intestinal obstruction [Recovered/Resolved]
  - Gastrointestinal disorder [Not Recovered/Not Resolved]
  - Abdominal adhesions [Not Recovered/Not Resolved]

NARRATIVE: CASE EVENT DATE: 2018
